FAERS Safety Report 12624302 (Version 1)
Quarter: 2016Q3

REPORT INFORMATION
  Report Type: Report from Study
  Country: US (occurrence: US)
  Receive Date: 20160805
  Receipt Date: 20160805
  Transmission Date: 20161109
  Serious: Yes (Death)
  Sender: FDA-Public Use
  Company Number: US-ABBVIE-16K-163-1693731-00

PATIENT
  Age: 76 Year
  Sex: Female

DRUGS (1)
  1. HUMIRA [Suspect]
     Active Substance: ADALIMUMAB
     Indication: RHEUMATOID ARTHRITIS
     Route: 058
     Dates: start: 201405, end: 20160613

REACTIONS (4)
  - White blood cell count decreased [Fatal]
  - Platelet count decreased [Fatal]
  - Renal impairment [Fatal]
  - Red blood cell count decreased [Fatal]

NARRATIVE: CASE EVENT DATE: 20160530
